FAERS Safety Report 5816377-6 (Version None)
Quarter: 2008Q3

REPORT INFORMATION
  Report Type: 
  Country: None (occurrence: None)
  Receive Date: 20080721
  Receipt Date: 20080323
  Transmission Date: 20090109
  Serious: No
  Sender: FDA-Public Use
  Company Number: US-BAUSCH-2008BL001264

PATIENT
  Sex: Female

DRUGS (1)
  1. OPCON-A [Suspect]
     Route: 047

REACTIONS (3)
  - MYDRIASIS [None]
  - PHOTOPSIA [None]
  - VISION BLURRED [None]
